FAERS Safety Report 24289513 (Version 2)
Quarter: 2024Q4

REPORT INFORMATION
  Report Type: Spontaneous
  Country: AU (occurrence: AU)
  Receive Date: 20240906
  Receipt Date: 20241008
  Transmission Date: 20250115
  Serious: Yes (Death)
  Sender: GENMAB
  Company Number: AU-ABBVIE-5905238

PATIENT
  Sex: Male
  Weight: 75 kg

DRUGS (1)
  1. EPCORITAMAB [Suspect]
     Active Substance: EPCORITAMAB
     Indication: Product used for unknown indication
     Dosage: 48 MILLIGRAM,1Q2W
     Route: 058
     Dates: start: 20240221, end: 20240530

REACTIONS (1)
  - COVID-19 pneumonia [Fatal]
